FAERS Safety Report 4646587-5 (Version None)
Quarter: 2005Q2

REPORT INFORMATION
  Report Type: 
  Country: None (occurrence: None)
  Receive Date: 20050427
  Receipt Date: 20050110
  Transmission Date: 20051028
  Serious: No
  Sender: FDA-Public Use
  Company Number: US-GLAXOSMITHKLINE-A0540065A

PATIENT
  Age: 78 Year
  Sex: Female

DRUGS (8)
  1. FLOVENT [Suspect]
     Dosage: 2PUFF TWICE PER DAY
     Route: 055
  2. SEREVENT [Suspect]
     Dosage: 2PUFF TWICE PER DAY
     Route: 055
  3. THEOPHYLLINE [Concomitant]
  4. ESTRACE [Concomitant]
  5. VITAMINS [Concomitant]
  6. CALCIUM GLUCONATE [Concomitant]
  7. ALBUTEROL [Concomitant]
  8. FLONASE [Concomitant]

REACTIONS (3)
  - DRY MOUTH [None]
  - OVERDOSE [None]
  - TACHYCARDIA [None]
